FAERS Safety Report 6134837-8 (Version None)
Quarter: 2009Q1

REPORT INFORMATION
  Report Type: 
  Country: None (occurrence: None)
  Receive Date: 20090327
  Receipt Date: 20090316
  Transmission Date: 20090719
  Serious: Yes (Hospitalization)
  Sender: FDA-Public Use
  Company Number: AU-NOVOPROD-285598

PATIENT
  Age: 58 Year
  Sex: Female

DRUGS (7)
  1. MIXTARD HUMAN 70/30 [Suspect]
     Indication: INSULIN-REQUIRING TYPE 2 DIABETES MELLITUS
     Dosage: 30 U, QD
  2. GLICLAZIDE [Concomitant]
     Dosage: 90 MG, QD
  3. METOPROLOL [Concomitant]
     Dosage: 25 MG, BID
  4. RAMIPRIL [Concomitant]
     Dosage: 10 MG, QD
  5. DIGOXIN [Concomitant]
     Dosage: 62.5 UG, QD
  6. WARFARIN SODIUM [Concomitant]
     Dosage: 2 MG, QD
  7. ATORVASTATIN [Concomitant]
     Dosage: 40 MG, QD

REACTIONS (5)
  - ABDOMINAL PAIN [None]
  - CALCIPHYLAXIS [None]
  - NAUSEA [None]
  - SKIN ULCER [None]
  - VOMITING [None]
